FAERS Safety Report 8585645-X (Version None)
Quarter: 2012Q3

REPORT INFORMATION
  Report Type: 
  Country: None (occurrence: None)
  Receive Date: 20120810
  Receipt Date: 20120725
  Transmission Date: 20120928
  Serious: No
  Sender: FDA-Public Use
  Company Number: US-009507513-1207USA011617

PATIENT

DRUGS (3)
  1. VIIBRYD [Concomitant]
  2. SAPHRIS [Suspect]
     Indication: BIPOLAR DISORDER
     Dosage: UNK
     Route: 060
     Dates: start: 20110801, end: 20120601
  3. DIOVAN [Concomitant]

REACTIONS (2)
  - ANXIETY [None]
  - DEPRESSION [None]
